FAERS Safety Report 8621947-6 (Version None)
Quarter: 2012Q3

REPORT INFORMATION
  Report Type: 
  Country: None (occurrence: None)
  Receive Date: 20120822
  Receipt Date: 20120822
  Transmission Date: 20120928
  Serious: No
  Sender: FDA-Public Use
  Company Number: None

PATIENT
  Sex: Female
  Weight: 83.9154 kg

DRUGS (3)
  1. PREVACID [Suspect]
     Dates: start: 20110101
  2. NEXIUM [Suspect]
     Dosage: ORAL
     Route: 048
     Dates: start: 20110101
  3. NEXIUM [Suspect]
     Dosage: ORAL
     Route: 048
     Dates: start: 20100101

REACTIONS (2)
  - OESOPHAGITIS [None]
  - SKIN ULCER [None]
